FAERS Safety Report 9773941 (Version 1)
Quarter: 2013Q4

REPORT INFORMATION
  Report Type: Report from Study
  Country: PL (occurrence: PL)
  Receive Date: 20131220
  Receipt Date: 20131220
  Transmission Date: 20140711
  Serious: Yes (Death, Other)
  Sender: FDA-Public Use
  Company Number: PL-ROCHE-1322155

PATIENT
  Sex: 0

DRUGS (7)
  1. RITUXIMAB [Suspect]
     Indication: NON-HODGKIN^S LYMPHOMA
     Dosage: ON DAY 1
     Route: 065
  2. CYCLOPHOSPHAMIDE [Suspect]
     Indication: NON-HODGKIN^S LYMPHOMA
     Dosage: IN CHOP: 750MG/M2, IN MAXI CHOP: 1200 MG/M2, IN HYPER-CVAD: 300 MG/M2 FOR 6 DOSES ON DAYS 1-3
     Route: 065
  3. DOXORUBICIN [Suspect]
     Indication: NON-HODGKIN^S LYMPHOMA
     Dosage: IN CHOP: 50MG/M2, IN MAXI CHOP: 75 MG/M2, IN HYPER-CVAD: 50 MG/M2
     Route: 065
  4. VINCRISTINE [Suspect]
     Indication: NON-HODGKIN^S LYMPHOMA
     Dosage: IN CHOP: 1.4 MG/M2 (MAX 2 MG/DOSE) ON DAY 1, IN MAXI CHOP: 2 MG ON DAY 1, IN HYPER-CVAD: 2 MG ON DAY
     Route: 065
  5. PREDNISONE [Suspect]
     Indication: NON-HODGKIN^S LYMPHOMA
     Dosage: IN CHOP: 40MG/M2 ON DAYS 1-5 AND IN MAXI CHOP: 100 MG ON DAYS 1-5
     Route: 065
  6. ETOPOSIDE [Suspect]
     Indication: NON-HODGKIN^S LYMPHOMA
     Dosage: ON DAYS 1-3
     Route: 065
  7. DEXAMETHASONE [Suspect]
     Indication: NON-HODGKIN^S LYMPHOMA
     Dosage: IN HYPER-CVAD: 40 MG DEXAMETHASONE ON DAYS 1-4 AND 11-14
     Route: 065

REACTIONS (7)
  - Myocardial infarction [Fatal]
  - Arrhythmia [Fatal]
  - Cardiac failure [Fatal]
  - Embolic stroke [Fatal]
  - Sudden death [Fatal]
  - Cardiovascular disorder [Fatal]
  - Cardiotoxicity [Unknown]
